FAERS Safety Report 10566432 (Version 1)
Quarter: 2014Q4

REPORT INFORMATION
  Report Type: Spontaneous
  Country: IT (occurrence: IT)
  Receive Date: 20141105
  Receipt Date: 20141105
  Transmission Date: 20150529
  Serious: Yes (Other)
  Sender: FDA-Public Use
  Company Number: IT-TEVA-519585ISR

PATIENT
  Age: 75 Year
  Sex: Female

DRUGS (2)
  1. LETROZOLO TEVA 2.5MG [Suspect]
     Active Substance: LETROZOLE
     Indication: BREAST CANCER
     Dosage: 2.5 MILLIGRAM DAILY;
     Route: 048
     Dates: start: 20140915, end: 20141008
  2. PROPILTIOURACILE [Concomitant]

REACTIONS (3)
  - Blindness [Recovered/Resolved]
  - Pain in extremity [Recovering/Resolving]
  - Pain in extremity [None]

NARRATIVE: CASE EVENT DATE: 20141005
